FAERS Safety Report 6522336-0 (Version None)
Quarter: 2009Q4

REPORT INFORMATION
  Report Type: 
  Country: None (occurrence: None)
  Receive Date: 20091230
  Receipt Date: 20091224
  Transmission Date: 20100525
  Serious: Yes (Hospitalization)
  Sender: FDA-Public Use
  Company Number: B0620208A

PATIENT
  Sex: Female

DRUGS (6)
  1. AUGMENTIN '125' [Suspect]
     Indication: ERYSIPELAS
     Dosage: 1G THREE TIMES PER DAY
     Route: 042
     Dates: start: 20090913, end: 20090916
  2. AUGMENTIN '125' [Suspect]
     Indication: ERYSIPELAS
     Dosage: 1G THREE TIMES PER DAY
     Route: 048
     Dates: start: 20090917, end: 20090921
  3. LASILIX [Suspect]
     Indication: DRUG USE FOR UNKNOWN INDICATION
     Route: 048
     Dates: start: 20090914, end: 20090922
  4. LOVENOX [Concomitant]
     Indication: THROMBOSIS PROPHYLAXIS
     Dosage: .4ML PER DAY
     Route: 058
     Dates: start: 20090914
  5. PYOSTACINE [Concomitant]
     Indication: ERYSIPELAS
     Route: 065
  6. DALACINE [Concomitant]
     Indication: ERYSIPELAS
     Route: 065

REACTIONS (7)
  - ANAPHYLACTIC REACTION [None]
  - CHOLESTASIS [None]
  - DRUG RASH WITH EOSINOPHILIA AND SYSTEMIC SYMPTOMS [None]
  - HEPATOCELLULAR INJURY [None]
  - PANCREATITIS [None]
  - PYREXIA [None]
  - RASH [None]
